FAERS Safety Report 17678934 (Version 1)
Quarter: 2020Q2

REPORT INFORMATION
  Report Type: Spontaneous
  Country: US (occurrence: US)
  Receive Date: 20200416
  Receipt Date: 20200416
  Transmission Date: 20200714
  Serious: No
  Sender: FDA-Public Use
  Company Number: None

PATIENT
  Sex: Female

DRUGS (1)
  1. NINLARO [Suspect]
     Active Substance: IXAZOMIB CITRATE
     Indication: PLASMA CELL MYELOMA
     Dosage: ?          OTHER FREQUENCY:DAYS 1,8, +15;?
     Route: 048
     Dates: start: 20200402

REACTIONS (4)
  - Peripheral swelling [None]
  - Paraesthesia [None]
  - Musculoskeletal pain [None]
  - Skin discolouration [None]
